FAERS Safety Report 12618313 (Version 34)
Quarter: 2021Q2

REPORT INFORMATION
  Report Type: Spontaneous
  Country: JP (occurrence: JP)
  Receive Date: 20160803
  Receipt Date: 20210517
  Transmission Date: 20210716
  Serious: Yes (Hospitalization, Other)
  Sender: FDA-Public Use
  Company Number: PHJP2016JP022096

PATIENT
  Sex: Male

DRUGS (66)
  1. EQUA TAB [Suspect]
     Active Substance: VILDAGLIPTIN
     Dosage: 50 MG, BID
     Route: 048
     Dates: start: 20160308
  2. DIOVAN [Suspect]
     Active Substance: VALSARTAN
     Dosage: 80 MG, BID
     Route: 048
  3. AMLODINE [Suspect]
     Active Substance: AMLODIPINE BESYLATE
     Indication: ANGINA PECTORIS
     Dosage: UNK
     Route: 065
     Dates: start: 20151017
  4. AMLODINE [Suspect]
     Active Substance: AMLODIPINE BESYLATE
     Dosage: 10 MG, BID
     Route: 065
     Dates: start: 20201108
  5. LULLAN [Suspect]
     Active Substance: PEROSPIRONE HYDROCHLORIDE
     Indication: ANXIETY
     Dosage: 4 MG, TID
     Route: 065
     Dates: start: 201911
  6. RISPERIDONE. [Suspect]
     Active Substance: RISPERIDONE
     Indication: ANXIETY
     Dosage: 1 MG, BID
     Route: 065
  7. RISPERIDONE. [Suspect]
     Active Substance: RISPERIDONE
     Indication: ABULIA
     Dosage: 8 MG, 6?8MG
     Route: 065
     Dates: start: 2017, end: 2018
  8. RISPERIDONE. [Suspect]
     Active Substance: RISPERIDONE
     Dosage: 1 MG, BID(PRN)
     Route: 065
  9. CYMBALTA [Suspect]
     Active Substance: DULOXETINE HYDROCHLORIDE
     Dosage: UNK
     Route: 065
  10. MEILAX [Suspect]
     Active Substance: ETHYL LOFLAZEPATE
     Indication: SOMNOLENCE
     Dosage: UNK
     Route: 048
     Dates: start: 202006
  11. LANDSEN [Suspect]
     Active Substance: CLONAZEPAM
     Dosage: 0.25 MG, BID, AS?NEEDED BASIS
     Route: 048
     Dates: start: 20210217
  12. METGLUCO [Suspect]
     Active Substance: METFORMIN HYDROCHLORIDE
     Indication: HYPERTENSION
     Dosage: 1000 MG, BID
     Route: 048
     Dates: start: 20160201
  13. AMLODINE [Suspect]
     Active Substance: AMLODIPINE BESYLATE
     Dosage: 10 MG
     Route: 065
  14. LULLAN [Suspect]
     Active Substance: PEROSPIRONE HYDROCHLORIDE
     Indication: PERSISTENT DEPRESSIVE DISORDER
     Dosage: 4 MG, BID
     Route: 065
  15. LULLAN [Suspect]
     Active Substance: PEROSPIRONE HYDROCHLORIDE
     Indication: STUPOR
     Dosage: 4 MG, BID(PRN)
     Route: 065
  16. LULLAN [Suspect]
     Active Substance: PEROSPIRONE HYDROCHLORIDE
     Dosage: UNK, 4 TIMES ONE DAY
     Route: 065
  17. CYMBALTA [Suspect]
     Active Substance: DULOXETINE HYDROCHLORIDE
     Indication: ANXIETY
     Dosage: 60 MG
     Route: 065
  18. MEILAX [Suspect]
     Active Substance: ETHYL LOFLAZEPATE
     Dosage: UNK
     Route: 048
     Dates: start: 20201224
  19. LOXONIN [Suspect]
     Active Substance: LOXOPROFEN SODIUM
     Indication: ARTHRALGIA
  20. DIOVAN [Suspect]
     Active Substance: VALSARTAN
     Dosage: 80 MG
     Route: 048
  21. MEILAX [Suspect]
     Active Substance: ETHYL LOFLAZEPATE
     Indication: LISTLESS
     Dosage: 2 MG
     Route: 048
  22. LOXONIN [Suspect]
     Active Substance: LOXOPROFEN SODIUM
     Indication: OSTEOARTHRITIS
     Dosage: UNK, TID
     Route: 061
  23. MICAMLO [Concomitant]
     Active Substance: AMLODIPINE BESYLATE\TELMISARTAN
     Indication: HYPERTENSION
     Route: 065
  24. DIOVAN [Suspect]
     Active Substance: VALSARTAN
     Dosage: 80 MG IN THE MORNING, 40 MG IN THE EVENING BID
     Route: 048
     Dates: start: 20200601
  25. DIOVAN [Suspect]
     Active Substance: VALSARTAN
     Dosage: 40 MG, QD, AFTER DINNER
     Route: 048
  26. METGLUCO [Suspect]
     Active Substance: METFORMIN HYDROCHLORIDE
     Indication: TYPE 2 DIABETES MELLITUS
     Dosage: 500 MG, BID
     Route: 048
     Dates: end: 20151005
  27. METGLUCO [Suspect]
     Active Substance: METFORMIN HYDROCHLORIDE
     Dosage: 500MG, BID, MORNING AND EVENING
     Route: 048
  28. AMLODINE [Suspect]
     Active Substance: AMLODIPINE BESYLATE
     Indication: HYPERTENSION
     Dosage: UNK
     Route: 065
     Dates: end: 20151005
  29. AMLODINE [Suspect]
     Active Substance: AMLODIPINE BESYLATE
     Dosage: 5 MG IN THE MORNING, 2.5 MG IN THE EVENING
     Route: 065
     Dates: start: 20200601
  30. AMLODINE [Suspect]
     Active Substance: AMLODIPINE BESYLATE
     Dosage: 2.5 MG, AFTER DINNER
     Route: 065
  31. LULLAN [Suspect]
     Active Substance: PEROSPIRONE HYDROCHLORIDE
     Indication: ABULIA
     Dosage: 4 UNK,TOOK 4 MG IN THE AFTERNOON
     Route: 065
     Dates: start: 20201002
  32. LULLAN [Suspect]
     Active Substance: PEROSPIRONE HYDROCHLORIDE
     Dosage: 4 MG, BID(PRN)
     Route: 065
  33. AZELASTINE HYDROCHLORIDE. [Suspect]
     Active Substance: AZELASTINE HYDROCHLORIDE
     Indication: RHINITIS ALLERGIC
     Dosage: 8 MG
     Route: 065
  34. BELSOMRA [Concomitant]
     Active Substance: SUVOREXANT
     Indication: PRODUCT USED FOR UNKNOWN INDICATION
     Dosage: UNK
     Route: 065
  35. DIOVAN [Suspect]
     Active Substance: VALSARTAN
     Indication: HYPERTENSION
     Dosage: 40 UNK
     Route: 048
     Dates: end: 20151005
  36. DIOVAN [Suspect]
     Active Substance: VALSARTAN
     Dosage: 40 MG, QD(ONLY IN THE EVENING)
     Route: 048
     Dates: start: 202006, end: 20200627
  37. METGLUCO [Suspect]
     Active Substance: METFORMIN HYDROCHLORIDE
     Dosage: 500 MG
     Route: 048
  38. AMLODINE [Suspect]
     Active Substance: AMLODIPINE BESYLATE
     Dosage: 10 MG, BID
     Route: 065
     Dates: start: 20201109
  39. AMLODINE [Suspect]
     Active Substance: AMLODIPINE BESYLATE
     Dosage: 7.5 MG
     Route: 048
     Dates: start: 20210405
  40. LULLAN [Suspect]
     Active Substance: PEROSPIRONE HYDROCHLORIDE
     Indication: CHEST DISCOMFORT
     Dosage: 8 MG
     Route: 065
  41. MEILAX [Suspect]
     Active Substance: ETHYL LOFLAZEPATE
     Indication: STUPOR
     Dosage: UNK
     Route: 048
  42. BETANIS [Concomitant]
     Active Substance: MIRABEGRON
     Indication: PRODUCT USED FOR UNKNOWN INDICATION
     Dosage: UNK
     Route: 065
  43. LITHIUM. [Concomitant]
     Active Substance: LITHIUM
     Indication: ANXIETY
     Dosage: UNK
     Route: 065
  44. METGLUCO [Suspect]
     Active Substance: METFORMIN HYDROCHLORIDE
     Dosage: 1500 MG
     Route: 048
  45. AMLODINE [Suspect]
     Active Substance: AMLODIPINE BESYLATE
     Dosage: 2.5 MG
     Route: 065
     Dates: start: 202006
  46. LULLAN [Suspect]
     Active Substance: PEROSPIRONE HYDROCHLORIDE
     Dosage: 4 UNK
     Route: 048
  47. RISPERIDONE. [Suspect]
     Active Substance: RISPERIDONE
     Dosage: TAKE REGULARLY AND PRN, PRN WITHDRAWAL
     Route: 065
     Dates: end: 201911
  48. LANDSEN [Suspect]
     Active Substance: CLONAZEPAM
     Dosage: TAKEN ABOUT ONE?THIRD OF THE PRESCRIBED AMOUNT IN A SHORT TIME
     Route: 048
     Dates: start: 2019
  49. LITHIUM. [Concomitant]
     Active Substance: LITHIUM
     Dosage: 400 MG,TOOK 400 MG IN THE EVENING
     Route: 065
  50. TELMISARTAN. [Concomitant]
     Active Substance: TELMISARTAN
     Indication: HYPERTENSION
     Dosage: 30?40 MG
     Route: 065
  51. DIOVAN [Suspect]
     Active Substance: VALSARTAN
     Dosage: UNK
     Route: 048
     Dates: start: 20151017
  52. METGLUCO [Suspect]
     Active Substance: METFORMIN HYDROCHLORIDE
     Dosage: 500 MG, BID
     Route: 048
  53. AMLODINE [Suspect]
     Active Substance: AMLODIPINE BESYLATE
     Dosage: 5 MG
     Route: 065
     Dates: start: 20210224
  54. AMLODINE [Suspect]
     Active Substance: AMLODIPINE BESYLATE
     Dosage: 10 MG, QD, IN THE MORNING
     Route: 048
     Dates: start: 20210406
  55. AMLODINE [Suspect]
     Active Substance: AMLODIPINE BESYLATE
     Dosage: 5 MG, QD, IN THE MORNING
     Route: 048
  56. MEILAX [Suspect]
     Active Substance: ETHYL LOFLAZEPATE
     Dosage: 1 MG, BID(PRN WHEN STUPOR)
     Route: 048
  57. EQUA TAB [Suspect]
     Active Substance: VILDAGLIPTIN
     Indication: TYPE 2 DIABETES MELLITUS
     Dosage: UNK
     Route: 048
     Dates: end: 20151005
  58. METGLUCO [Suspect]
     Active Substance: METFORMIN HYDROCHLORIDE
     Dosage: 1000 MG
     Route: 048
  59. AMLODINE [Suspect]
     Active Substance: AMLODIPINE BESYLATE
     Dosage: 10 MG
     Route: 065
  60. LULLAN [Suspect]
     Active Substance: PEROSPIRONE HYDROCHLORIDE
     Indication: IRRITABILITY
     Dosage: 4 MG, QD
     Route: 065
     Dates: start: 201912
  61. RISPERIDONE. [Suspect]
     Active Substance: RISPERIDONE
     Indication: PERSISTENT DEPRESSIVE DISORDER
     Dosage: UNK
     Route: 065
  62. LANDSEN [Suspect]
     Active Substance: CLONAZEPAM
     Indication: STUPOR
     Dosage: UNK
     Route: 048
  63. LANDSEN [Suspect]
     Active Substance: CLONAZEPAM
     Dosage: 0.25 MG, QD
     Route: 048
     Dates: start: 20210211
  64. WYPAX [Suspect]
     Active Substance: LORAZEPAM
     Indication: PRODUCT USED FOR UNKNOWN INDICATION
     Dosage: UNK
     Route: 065
     Dates: end: 2019
  65. NEXIUM [Concomitant]
     Active Substance: ESOMEPRAZOLE MAGNESIUM
     Indication: PRODUCT USED FOR UNKNOWN INDICATION
     Dosage: UNK
     Route: 065
  66. LORAZEPAM. [Concomitant]
     Active Substance: LORAZEPAM
     Indication: PRODUCT USED FOR UNKNOWN INDICATION
     Dosage: UNK
     Route: 065
     Dates: end: 2020

REACTIONS (69)
  - Mental status changes [Unknown]
  - Palpitations [Unknown]
  - Visual impairment [Unknown]
  - Gait disturbance [Unknown]
  - Muscular weakness [Unknown]
  - Weight decreased [Unknown]
  - Angina pectoris [Unknown]
  - Cardiac discomfort [Recovered/Resolved]
  - Depressed level of consciousness [Unknown]
  - Head injury [Recovered/Resolved]
  - Blood pressure fluctuation [Unknown]
  - Time perception altered [Unknown]
  - Sleep apnoea syndrome [Unknown]
  - Parkinsonism [Unknown]
  - Blood pressure increased [Unknown]
  - Orthostatic hypotension [Recovering/Resolving]
  - Fall [Recovered/Resolved]
  - Drug interaction [Unknown]
  - Tension [Unknown]
  - Stress [Unknown]
  - Memory impairment [Unknown]
  - Abulia [Unknown]
  - Sensory disturbance [Unknown]
  - Vision blurred [Unknown]
  - Listless [Recovered/Resolved]
  - Dysphonia [Unknown]
  - Coronavirus infection [Unknown]
  - Irritability [Unknown]
  - Skin laceration [Recovered/Resolved]
  - Thought blocking [Recovered/Resolved]
  - Fatigue [Unknown]
  - Somnolence [Unknown]
  - Feeling abnormal [Unknown]
  - Hyperphagia [Unknown]
  - Osteoarthritis [Unknown]
  - Anxiety [Unknown]
  - Drug dependence [Unknown]
  - Anaemia [Unknown]
  - Pain in extremity [Recovered/Resolved]
  - Eating disorder [Unknown]
  - Respiration abnormal [Unknown]
  - Ulcer haemorrhage [Recovered/Resolved]
  - Dizziness [Unknown]
  - Psychiatric symptom [Unknown]
  - Phobia [Unknown]
  - Hypoglycaemia [Unknown]
  - Dysstasia [Unknown]
  - Stupor [Unknown]
  - Glycosylated haemoglobin increased [Recovering/Resolving]
  - Chest discomfort [Recovered/Resolved]
  - Dizziness postural [Recovered/Resolved]
  - Orthostatic hypotension [Recovered/Resolved]
  - Dizziness postural [Unknown]
  - Tremor [Recovered/Resolved]
  - Weight increased [Unknown]
  - Insomnia [Unknown]
  - Akathisia [Unknown]
  - Vasodilatation [Unknown]
  - Malaise [Unknown]
  - Dyskinesia [Recovering/Resolving]
  - Cardiac discomfort [Unknown]
  - Pollakiuria [Unknown]
  - Product dose omission in error [Unknown]
  - Physical deconditioning [Unknown]
  - Behaviour disorder [Unknown]
  - Incontinence [Unknown]
  - Arthralgia [Unknown]
  - Pyrexia [Unknown]
  - Snoring [Unknown]

NARRATIVE: CASE EVENT DATE: 20160201
